FAERS Safety Report 5332310-8 (Version None)
Quarter: 2007Q2

REPORT INFORMATION
  Report Type: 
  Country: None (occurrence: None)
  Receive Date: 20070521
  Receipt Date: 20070521
  Transmission Date: 20071010
  Serious: Yes (Hospitalization)
  Sender: FDA-Public Use
  Company Number: None

PATIENT
  Sex: Male
  Weight: 10 kg

DRUGS (3)
  1. GAMUNEX [Suspect]
     Indication: KAWASAKI'S DISEASE
     Dosage: 20 GM ONCE IV
     Route: 042
     Dates: start: 20070505, end: 20070505
  2. GAMUNEX [Suspect]
     Indication: KAWASAKI'S DISEASE
     Dosage: 17.5 GM ONCE IV
     Route: 042
     Dates: start: 20070516, end: 20070516
  3. GAMUNEX [Suspect]
     Indication: KAWASAKI'S DISEASE

REACTIONS (3)
  - HAEMATOCRIT DECREASED [None]
  - HAEMOGLOBIN DECREASED [None]
  - HAEMOLYSIS [None]
